FAERS Safety Report 4457448-9 (Version None)
Quarter: 2004Q3

REPORT INFORMATION
  Report Type: 
  Country: None (occurrence: None)
  Receive Date: 20040922
  Receipt Date: 20040913
  Transmission Date: 20050211
  Serious: Yes (Death, Hospitalization, Other)
  Sender: FDA-Public Use
  Company Number: US-JNJFOC-20040903478

PATIENT
  Age: 27 Year
  Sex: Female

DRUGS (3)
  1. TYLENOL (GELTAB) [Suspect]
     Indication: SUICIDE ATTEMPT
     Dosage: 25 G, 1 IN 1 TOTAL, ORAL
     Route: 048
  2. COCAINE (COCAINE) [Suspect]
     Indication: DRUG ABUSER
  3. COCAINE (COCAINE) [Suspect]
     Indication: SUICIDE ATTEMPT

REACTIONS (8)
  - ACIDOSIS [None]
  - COMA [None]
  - DRUG ABUSER [None]
  - ENCEPHALOPATHY [None]
  - GASTROINTESTINAL HAEMORRHAGE [None]
  - HEPATIC NECROSIS [None]
  - INTENTIONAL OVERDOSE [None]
  - INTERNATIONAL NORMALISED RATIO INCREASED [None]
